FAERS Safety Report 17912253 (Version 1)
Quarter: 2020Q2

REPORT INFORMATION
  Report Type: Spontaneous
  Country: NL (occurrence: DK)
  Receive Date: 20200618
  Receipt Date: 20200618
  Transmission Date: 20200714
  Serious: Yes (Hospitalization, Other)
  Sender: FDA-Public Use
  Company Number: DK-FRESENIUS KABI-FK202005955

PATIENT
  Age: 54 Year
  Sex: Male

DRUGS (2)
  1. METFORMIN HYDROCHLORIDE. [Concomitant]
     Active Substance: METFORMIN HYDROCHLORIDE
     Indication: DIABETES MELLITUS
     Dosage: 1000 MILLIGRAM, QD?STRENGTH: 500 MG
     Route: 048
     Dates: start: 20170409, end: 202005
  2. CARBOPLATIN (MANUFACTURER UNKNOWN) [Suspect]
     Active Substance: CARBOPLATIN
     Indication: NON-SMALL CELL LUNG CANCER
     Dosage: 550 MILLIGRAM?STRENGTH: 10 MG / ML CYTO IN GLUCOSE ISOTONIC 250 ML SOLUTION FOR INFUSION
     Route: 042
     Dates: start: 20200219

REACTIONS (2)
  - Pancreatitis acute [Not Recovered/Not Resolved]
  - Abdominal pain [Not Recovered/Not Resolved]

NARRATIVE: CASE EVENT DATE: 20200513
